FAERS Safety Report 12241917 (Version 1)
Quarter: 2016Q2

REPORT INFORMATION
  Report Type: Spontaneous
  Country: US (occurrence: US)
  Receive Date: 20160406
  Receipt Date: 20160406
  Transmission Date: 20160815
  Serious: No
  Sender: FDA-Public Use
  Company Number: US-WARNER CHILCOTT, LLC-1050268

PATIENT
  Age: 56 Year
  Sex: Female

DRUGS (4)
  1. XANAX [Concomitant]
     Active Substance: ALPRAZOLAM
  2. FOLIC ACID. [Concomitant]
     Active Substance: FOLIC ACID
  3. FEMRING [Suspect]
     Active Substance: ESTRADIOL ACETATE
     Indication: MENOPAUSAL SYMPTOMS
     Route: 067
  4. TESTOSTERONE. [Concomitant]
     Active Substance: TESTOSTERONE

REACTIONS (6)
  - Hot flush [Not Recovered/Not Resolved]
  - Drug ineffective [None]
  - Drug prescribing error [None]
  - Menopausal symptoms [Not Recovered/Not Resolved]
  - Fungal infection [Unknown]
  - Drug administration error [None]
